FAERS Safety Report 8271358-0 (Version None)
Quarter: 2012Q2

REPORT INFORMATION
  Report Type: 
  Country: None (occurrence: None)
  Receive Date: 20120410
  Receipt Date: 20120119
  Transmission Date: 20120825
  Serious: No
  Sender: FDA-Public Use
  Company Number: US-NOVEN-12US003952

PATIENT
  Sex: Female

DRUGS (3)
  1. OXYCODONE HCL [Concomitant]
     Indication: BREAKTHROUGH PAIN
     Route: 048
  2. FENTANYL CITRATE [Suspect]
     Dosage: 50 UG/HR EVERY 72 HOURS
     Route: 062
     Dates: start: 20110101
  3. FENTANYL CITRATE [Suspect]
     Indication: COMPLEX REGIONAL PAIN SYNDROME
     Dosage: 75 UG/HR, Q 72 HRS
     Route: 062
     Dates: start: 20120101

REACTIONS (4)
  - DRY MOUTH [None]
  - PAIN [None]
  - FATIGUE [None]
  - CONSTIPATION [None]
